FAERS Safety Report 9290695 (Version 2)
Quarter: 2013Q2

REPORT INFORMATION
  Report Type: Spontaneous
  Country: IN (occurrence: IN)
  Receive Date: 20130515
  Receipt Date: 20130521
  Transmission Date: 20140414
  Serious: Yes (Life-Threatening, Hospitalization, Other)
  Sender: FDA-Public Use
  Company Number: PHHY2013IN048044

PATIENT
  Age: 60 Year
  Sex: Male
  Weight: 55 kg

DRUGS (9)
  1. EFETRAN [Suspect]
     Indication: RHEUMATOID ARTHRITIS
     Dosage: 1 DF, BID
     Route: 048
  2. PARACETAMOL SANDOZ [Suspect]
     Dosage: UNK UKN, UNK
     Dates: end: 20130505
  3. ECOSPRIN [Suspect]
     Dosage: 150 MG, QD
     Dates: end: 20130505
  4. CLOPIDOGREL [Suspect]
     Dosage: 75 MG, QD
     Dates: end: 20130505
  5. PANTOCID [Concomitant]
     Dosage: 40 MG, QD
     Route: 048
  6. METOPROLOL [Concomitant]
     Dosage: 50 MG, QD
  7. ATORVASTATIN [Concomitant]
     Dosage: 20 MG, QD
  8. RAMIPRIL [Concomitant]
     Dosage: 2.5 MG, QD
  9. ANTIHYPERTENSIVE DRUGS [Concomitant]

REACTIONS (5)
  - Gastric ulcer [Unknown]
  - Abdominal pain [Unknown]
  - Large intestinal haemorrhage [Not Recovered/Not Resolved]
  - Intestinal perforation [Not Recovered/Not Resolved]
  - Gastric haemorrhage [Unknown]
